FAERS Safety Report 23389406 (Version 1)
Quarter: 2024Q1

REPORT INFORMATION
  Report Type: Report from Study
  Country: CA (occurrence: CA)
  Receive Date: 20240110
  Receipt Date: 20240110
  Transmission Date: 20240409
  Serious: Yes (Hospitalization, Other)
  Sender: FDA-Public Use
  Company Number: CA-ABBVIE-5575070

PATIENT
  Sex: Male

DRUGS (1)
  1. LUPRON DEPOT [Suspect]
     Active Substance: LEUPROLIDE ACETATE
     Indication: Prostate cancer
     Route: 065
     Dates: start: 20201230

REACTIONS (7)
  - Dizziness [Unknown]
  - Sensory disturbance [Unknown]
  - Onychomycosis [Unknown]
  - Lung disorder [Recovered/Resolved with Sequelae]
  - Gastrointestinal disorder [Unknown]
  - Vein rupture [Recovered/Resolved with Sequelae]
  - Unevaluable event [Unknown]
